FAERS Safety Report 8222209 (Version 3)
Quarter: 2013Q2

REPORT INFORMATION
  Report Type: Report from Study
  Country: VE (occurrence: VE)
  Receive Date: 20111102
  Receipt Date: 20130513
  Transmission Date: 20140414
  Serious: Yes (Hospitalization, Other)
  Sender: FDA-Public Use
  Company Number: PHHY2011VE95741

PATIENT
  Age: 65 Year
  Sex: Female

DRUGS (6)
  1. ACLASTA [Suspect]
     Indication: OSTEOPOROSIS
     Dosage: 5 MG, ANNUAL
     Route: 042
     Dates: start: 2008
  2. ACLASTA [Suspect]
     Dosage: 5 MG, ANNUAL
     Route: 042
     Dates: start: 2009
  3. ACLASTA [Suspect]
     Dosage: 5 MG, ANNUAL
     Route: 042
     Dates: start: 20101210
  4. LYRICA [Concomitant]
     Indication: PAIN
     Dosage: 75 MG, QD
     Route: 048
     Dates: start: 2011, end: 2012
  5. ENALAPRIL [Concomitant]
     Indication: BLOOD PRESSURE ABNORMAL
     Dosage: 20 MG, QD
     Route: 048
     Dates: start: 2005
  6. ENALAPRIL [Concomitant]
     Indication: HYPERTENSION

REACTIONS (3)
  - Nerve compression [Recovered/Resolved]
  - Pain [Recovered/Resolved]
  - Spinal pain [Recovering/Resolving]
